FAERS Safety Report 4700346-3 (Version None)
Quarter: 2005Q2

REPORT INFORMATION
  Report Type: 
  Country: None (occurrence: None)
  Receive Date: 20050627
  Receipt Date: 20050615
  Transmission Date: 20051028
  Serious: Yes (Hospitalization)
  Sender: FDA-Public Use
  Company Number: US-AMGEN-US139832

PATIENT
  Sex: Female

DRUGS (5)
  1. NEUPOGEN [Suspect]
     Indication: CHEMOTHERAPY
     Route: 058
     Dates: start: 20050101
  2. CYTOXAN [Concomitant]
     Route: 042
     Dates: end: 20050527
  3. ADRIAMYCIN PFS [Concomitant]
     Route: 042
     Dates: end: 20050527
  4. ZINECARD [Concomitant]
     Route: 042
     Dates: end: 20050527
  5. PROCRIT [Concomitant]
     Route: 058
     Dates: start: 20050501

REACTIONS (1)
  - MYALGIA [None]
